FAERS Safety Report 16880554 (Version 1)
Quarter: 2019Q4

REPORT INFORMATION
  Report Type: Spontaneous
  Country: US (occurrence: US)
  Receive Date: 20191003
  Receipt Date: 20191003
  Transmission Date: 20200122
  Serious: No
  Sender: FDA-Public Use
  Company Number: US-GLAXOSMITHKLINE-US2019177833

PATIENT
  Sex: Female
  Weight: 87 kg

DRUGS (1)
  1. ALLI [Suspect]
     Active Substance: ORLISTAT
     Indication: WEIGHT LOSS DIET
     Dosage: UNK

REACTIONS (5)
  - Steatorrhoea [Unknown]
  - Drug ineffective [Unknown]
  - Frequent bowel movements [Unknown]
  - Flatulence [Unknown]
  - Abnormal faeces [Unknown]
